FAERS Safety Report 6695807-4 (Version None)
Quarter: 2010Q2

REPORT INFORMATION
  Report Type: 
  Country: None (occurrence: None)
  Receive Date: 20100421
  Receipt Date: 20100406
  Transmission Date: 20101027
  Serious: Yes (Hospitalization)
  Sender: FDA-Public Use
  Company Number: DSJ-2010-05772

PATIENT
  Age: 68 Year
  Sex: Male

DRUGS (4)
  1. BENICAR [Suspect]
     Indication: HYPERTENSION
     Dosage: 40 MG  (40 MG, 1 IN 1 D), PER ORAL
     Route: 048
     Dates: start: 20070101
  2. ATENOLOL [Concomitant]
  3. APRESOLINE HYDRALAZINE HYDROCHLORID) [Concomitant]
  4. FLUOXETINE [Concomitant]

REACTIONS (8)
  - BLOOD PRESSURE FLUCTUATION [None]
  - BLOOD PRESSURE INCREASED [None]
  - DIZZINESS [None]
  - HAEMORRHAGIC STROKE [None]
  - HEADACHE [None]
  - MALAISE [None]
  - PARKINSON'S DISEASE [None]
  - VISION BLURRED [None]
